FAERS Safety Report 13156885 (Version 2)
Quarter: 2017Q2

REPORT INFORMATION
  Report Type: Report from Study
  Country: GB (occurrence: GB)
  Receive Date: 20170127
  Receipt Date: 20170421
  Transmission Date: 20170830
  Serious: Yes (Hospitalization, Other)
  Sender: FDA-Public Use
  Company Number: GB-ROCHE-1882748

PATIENT
  Age: 66 Year
  Sex: Female
  Weight: 86 kg

DRUGS (2)
  1. RITUXIMAB [Suspect]
     Active Substance: RITUXIMAB
     Indication: RHEUMATOID ARTHRITIS
     Route: 042
     Dates: start: 20141015
  2. METHOTREXATE. [Concomitant]
     Active Substance: METHOTREXATE
     Indication: RHEUMATOID ARTHRITIS
     Route: 065
     Dates: start: 20160623

REACTIONS (9)
  - Urinary tract infection [Recovered/Resolved]
  - Diabetic foot [Unknown]
  - Urosepsis [Unknown]
  - Diabetic gangrene [Unknown]
  - Peripheral artery stenosis [Unknown]
  - Haematoma [Unknown]
  - Foot amputation [Unknown]
  - Peripheral artery thrombosis [Unknown]
  - Systemic lupus erythematosus [Unknown]

NARRATIVE: CASE EVENT DATE: 20160623
